FAERS Safety Report 9409833 (Version 3)
Quarter: 2013Q3

REPORT INFORMATION
  Report Type: Spontaneous
  Country: JP (occurrence: JP)
  Receive Date: 20130719
  Receipt Date: 20130821
  Transmission Date: 20140515
  Serious: Yes (Death, Hospitalization, Other)
  Sender: FDA-Public Use
  Company Number: JP-PFIZER INC-2013210747

PATIENT
  Age: 80 Year
  Sex: Female

DRUGS (5)
  1. LYRICA [Suspect]
     Dosage: 25 MG, 1X/DAY
     Route: 048
     Dates: start: 201012, end: 201307
  2. TRAMCET [Concomitant]
     Dosage: UNK
  3. ASPIRIN [Concomitant]
     Dosage: UNK
  4. OPALMON [Concomitant]
     Dosage: UNK
  5. THYRADIN [Concomitant]
     Dosage: UNK

REACTIONS (4)
  - Death [Fatal]
  - Interstitial lung disease [Unknown]
  - Fall [Unknown]
  - Head injury [Unknown]
